FAERS Safety Report 6707633-8 (Version None)
Quarter: 2010Q2

REPORT INFORMATION
  Report Type: 
  Country: None (occurrence: None)
  Receive Date: 20100503
  Receipt Date: 20090831
  Transmission Date: 20101027
  Serious: No
  Sender: FDA-Public Use
  Company Number: US-ASTRAZENECA-2009SE11029

PATIENT
  Sex: Female

DRUGS (2)
  1. NEXIUM [Suspect]
     Indication: GASTROOESOPHAGEAL REFLUX DISEASE
     Route: 048
     Dates: start: 20080501, end: 20081101
  2. NEXIUM [Suspect]
     Route: 048
     Dates: start: 20090601

REACTIONS (3)
  - ABDOMINAL PAIN [None]
  - BACK PAIN [None]
  - GALLBLADDER OPERATION [None]
